FAERS Safety Report 6753895-0 (Version None)
Quarter: 2010Q2

REPORT INFORMATION
  Report Type: 
  Country: None (occurrence: None)
  Receive Date: 20100603
  Receipt Date: 20100525
  Transmission Date: 20101027
  Serious: Yes (Hospitalization, Other)
  Sender: FDA-Public Use
  Company Number: CA-JNJFOC-20100510097

PATIENT
  Sex: Female

DRUGS (4)
  1. REMICADE [Suspect]
     Indication: CROHN'S DISEASE
     Route: 042
  2. IMURAN [Concomitant]
  3. ASACOL [Concomitant]
  4. ALESSE [Concomitant]

REACTIONS (3)
  - ADVERSE REACTION [None]
  - HYPOAESTHESIA [None]
  - PARAESTHESIA [None]
